FAERS Safety Report 12846847 (Version 3)
Quarter: 2016Q4

REPORT INFORMATION
  Report Type: Spontaneous
  Country: CA (occurrence: CA)
  Receive Date: 20161014
  Receipt Date: 20161014
  Transmission Date: 20170207
  Serious: Yes (Other)
  Sender: FDA-Public Use
  Company Number: CA-CONCORDIA PHARMACEUTICALS INC.-E2B_00007863

PATIENT
  Age: 69 Year
  Sex: Female

DRUGS (19)
  1. LEFLUNOMIDE. [Concomitant]
     Active Substance: LEFLUNOMIDE
     Dates: start: 20050721
  2. TRIAMCINOLONE ACETATE [Concomitant]
     Active Substance: TRIAMCINOLONE ACETONIDE
  3. VOLTAREN [Concomitant]
     Active Substance: DICLOFENAC SODIUM
  4. SULFASALAZINE. [Concomitant]
     Active Substance: SULFASALAZINE
     Dates: start: 20040820
  5. BISOPROLOL FUMARATE. [Concomitant]
     Active Substance: BISOPROLOL FUMARATE
  6. CALCIUM [Concomitant]
     Active Substance: CALCIUM
  7. TYLENOL ARTHRITIS PAIN [Concomitant]
     Active Substance: ACETAMINOPHEN
  8. RABEPRAZOLE [Concomitant]
     Active Substance: RABEPRAZOLE
  9. CANDESARTAN CILEXETIL. [Concomitant]
     Active Substance: CANDESARTAN CILEXETIL
  10. NITRO [Concomitant]
     Active Substance: NITROGLYCERIN
  11. XYLOCAINE [Concomitant]
     Active Substance: LIDOCAINE HYDROCHLORIDE
  12. PLAQUENIL [Suspect]
     Active Substance: HYDROXYCHLOROQUINE SULFATE
     Route: 048
     Dates: start: 2005, end: 2006
  13. VITAMIN D [Concomitant]
     Active Substance: CHOLECALCIFEROL
  14. SALBUTAMOL SULFATE [Concomitant]
     Active Substance: ALBUTEROL SULFATE
  15. VITAMIN B12 [Concomitant]
     Active Substance: CYANOCOBALAMIN
  16. METHOTREXATE. [Concomitant]
     Active Substance: METHOTREXATE
     Indication: RHEUMATOID ARTHRITIS
     Dates: start: 20140309
  17. FOLIC ACID. [Concomitant]
     Active Substance: FOLIC ACID
  18. PLAVIX [Concomitant]
     Active Substance: CLOPIDOGREL BISULFATE
  19. FERROUS GLUCONATE [Concomitant]
     Active Substance: FERROUS GLUCONATE

REACTIONS (4)
  - Temporomandibular joint syndrome [Unknown]
  - Drug ineffective [Unknown]
  - Pneumocystis jirovecii pneumonia [Recovering/Resolving]
  - Productive cough [Recovering/Resolving]

NARRATIVE: CASE EVENT DATE: 2013
